FAERS Safety Report 18862001 (Version 3)
Quarter: 2021Q1

REPORT INFORMATION
  Report Type: Report from Study
  Country: CA (occurrence: CA)
  Receive Date: 20210208
  Receipt Date: 20210324
  Transmission Date: 20210420
  Serious: Yes (Other)
  Sender: FDA-Public Use
  Company Number: PHHY2019CA107087

PATIENT
  Age: 49 Year
  Sex: Male

DRUGS (6)
  1. NAPROXEN. [Concomitant]
     Active Substance: NAPROXEN
     Indication: PRODUCT USED FOR UNKNOWN INDICATION
     Route: 065
  2. COSENTYX [Suspect]
     Active Substance: SECUKINUMAB
     Indication: PSORIATIC ARTHROPATHY
     Dosage: 300 MG, QMO
     Route: 058
     Dates: start: 20190202
  3. COSENTYX [Suspect]
     Active Substance: SECUKINUMAB
     Dosage: UNK UNK, QMO
     Route: 058
  4. RITUXIMAB. [Concomitant]
     Active Substance: RITUXIMAB
     Indication: PRODUCT USED FOR UNKNOWN INDICATION
     Route: 065
  5. COSENTYX [Suspect]
     Active Substance: SECUKINUMAB
     Dosage: 300 MG, QMO
     Route: 058
  6. INDOMETHACIN. [Concomitant]
     Active Substance: INDOMETHACIN
     Indication: PRODUCT USED FOR UNKNOWN INDICATION
     Route: 065

REACTIONS (21)
  - Arthralgia [Unknown]
  - Tenosynovitis [Unknown]
  - Elbow deformity [Unknown]
  - Therapy non-responder [Unknown]
  - Seronegative arthritis [Unknown]
  - Musculoskeletal stiffness [Unknown]
  - Cyclic vomiting syndrome [Not Recovered/Not Resolved]
  - Swollen joint count increased [Unknown]
  - Arthritis [Unknown]
  - Weight decreased [Unknown]
  - Synovial disorder [Unknown]
  - HIV infection [Unknown]
  - General physical health deterioration [Unknown]
  - Pain [Unknown]
  - Drug ineffective [Not Recovered/Not Resolved]
  - Arthropathy [Unknown]
  - Synovitis [Unknown]
  - Joint swelling [Unknown]
  - Joint effusion [Unknown]
  - Hepatitis B virus test positive [Unknown]
  - Swelling [Unknown]

NARRATIVE: CASE EVENT DATE: 20190206
